FAERS Safety Report 7808874-9 (Version None)
Quarter: 2011Q4

REPORT INFORMATION
  Report Type: 
  Country: None (occurrence: None)
  Receive Date: 20111012
  Receipt Date: 20111003
  Transmission Date: 20120403
  Serious: Yes (Death, Other)
  Sender: FDA-Public Use
  Company Number: US-SANOFI-AVENTIS-2011SA065191

PATIENT
  Sex: Male

DRUGS (3)
  1. LYRICA [Suspect]
     Route: 048
     Dates: start: 20110613, end: 20110616
  2. ANTIHYPERTENSIVES AND DIURETICS IN COMBINATIO [Suspect]
     Indication: HYPERTENSION
  3. AMARYL [Suspect]
     Route: 065

REACTIONS (2)
  - CARDIO-RESPIRATORY ARREST [None]
  - HYPOAESTHESIA [None]
